FAERS Safety Report 21379035 (Version 2)
Quarter: 2022Q4

REPORT INFORMATION
  Report Type: Spontaneous
  Country: US (occurrence: US)
  Receive Date: 20220927
  Receipt Date: 20221009
  Transmission Date: 20230113
  Serious: No
  Sender: FDA-Public Use
  Company Number: US-GLAXOSMITHKLINE-USCH2022AMR034369

PATIENT
  Age: 49 Year
  Sex: Female

DRUGS (3)
  1. EXCEDRIN [Suspect]
     Active Substance: ACETAMINOPHEN\ASPIRIN\CAFFEINE
     Indication: Migraine
     Dosage: UNKNOWN
  2. PAXLOVID [Suspect]
     Active Substance: NIRMATRELVIR\RITONAVIR
     Indication: Product used for unknown indication
     Dosage: UNKNOWN
  3. ASPIRIN\HYDROCODONE BITARTRATE [Suspect]
     Active Substance: ASPIRIN\HYDROCODONE BITARTRATE
     Indication: Migraine
     Dosage: UNKNOWN

REACTIONS (1)
  - Wrong technique in product usage process [Unknown]
